FAERS Safety Report 8265468-1 (Version None)
Quarter: 2012Q2

REPORT INFORMATION
  Report Type: 
  Country: None (occurrence: None)
  Receive Date: 20120406
  Receipt Date: 20120404
  Transmission Date: 20120825
  Serious: Yes (Other)
  Sender: FDA-Public Use
  Company Number: BR-PFIZER INC-2012061820

PATIENT
  Age: 68 Year
  Sex: Male
  Weight: 59 kg

DRUGS (2)
  1. VARENICLINE TARTRATE [Suspect]
     Indication: SMOKING CESSATION THERAPY
     Dosage: UNK
     Route: 048
     Dates: start: 20111201
  2. VARENICLINE TARTRATE [Suspect]
     Dosage: 1 MG EVERY 12 HOURS
     Route: 048
     Dates: end: 20120101

REACTIONS (8)
  - WEIGHT DECREASED [None]
  - DYSPNOEA [None]
  - EATING DISORDER [None]
  - AGEUSIA [None]
  - CHEST DISCOMFORT [None]
  - DECREASED APPETITE [None]
  - THROAT TIGHTNESS [None]
  - ANXIETY [None]
